FAERS Safety Report 5316381-0 (Version None)
Quarter: 2007Q2

REPORT INFORMATION
  Report Type: 
  Country: None (occurrence: None)
  Receive Date: 20070430
  Receipt Date: 20070420
  Transmission Date: 20071010
  Serious: Yes (Other)
  Sender: FDA-Public Use
  Company Number: TPA2007A00839

PATIENT
  Age: 4 Decade
  Sex: Female

DRUGS (3)
  1. ROZEREM [Suspect]
     Indication: INSOMNIA
     Dosage: 8 MG, QHS, PER ORAL
     Route: 048
     Dates: start: 20070418
  2. UNKNOWN BIPOLAR MEDICATION (ALL OTHER THERAPEUTIC PRODUCTS) [Concomitant]
  3. UNKNOWN DEPRESSION MEDICATIONS (ALL OTHER THERAPEUTIC PRODUCTS) [Concomitant]

REACTIONS (6)
  - ARTHRALGIA [None]
  - DEPRESSION [None]
  - HEADACHE [None]
  - INSOMNIA [None]
  - MYALGIA [None]
  - SUICIDAL IDEATION [None]
